FAERS Safety Report 23038386 (Version 4)
Quarter: 2023Q4

REPORT INFORMATION
  Report Type: Report from Study
  Country: US (occurrence: US)
  Receive Date: 20231006
  Receipt Date: 20231227
  Transmission Date: 20240110
  Serious: Yes (Hospitalization, Other)
  Sender: FDA-Public Use
  Company Number: US-BAYER-2023A137670

PATIENT
  Age: 53 Year
  Sex: Female
  Weight: 70.295 kg

DRUGS (22)
  1. ADEMPAS [Suspect]
     Active Substance: RIOCIGUAT
     Indication: Pulmonary arterial hypertension
     Dosage: UNK
     Dates: start: 20220616
  2. ADEMPAS [Suspect]
     Active Substance: RIOCIGUAT
     Indication: Pulmonary arterial hypertension
     Dosage: 1.5 MG, TID
     Route: 048
  3. ADEMPAS [Suspect]
     Active Substance: RIOCIGUAT
     Indication: Pulmonary arterial hypertension
     Dosage: 1 MG, TID
     Route: 048
  4. ELIQUIS [Concomitant]
     Active Substance: APIXABAN
  5. OPSUMIT [Concomitant]
     Active Substance: MACITENTAN
  6. CEPHALEXIN [Concomitant]
     Active Substance: CEPHALEXIN
  7. METOPROLOL TARTRATE [Concomitant]
     Active Substance: METOPROLOL TARTRATE
  8. METHOCARBAMOL [Concomitant]
     Active Substance: METHOCARBAMOL
  9. KLOR-CON M10 [Concomitant]
     Active Substance: POTASSIUM CHLORIDE
  10. SPIRONOLACTONE [Concomitant]
     Active Substance: SPIRONOLACTONE
  11. CORLANOR [Concomitant]
     Active Substance: IVABRADINE HYDROCHLORIDE
  12. HYDROCODONE [Concomitant]
     Active Substance: HYDROCODONE
  13. ACETAMINOPHEN [Concomitant]
     Active Substance: ACETAMINOPHEN
  14. BUMETANIDE [Concomitant]
     Active Substance: BUMETANIDE
  15. HYDROXYCHLOROQUINE SULFATE [Concomitant]
     Active Substance: HYDROXYCHLOROQUINE SULFATE
  16. IRON [Concomitant]
     Active Substance: IRON
  17. ASCORBIC ACID [Concomitant]
     Active Substance: ASCORBIC ACID
  18. SERTRALINE HYDROCHLORIDE [Concomitant]
     Active Substance: SERTRALINE HYDROCHLORIDE
  19. MIDODRINE HYDROCHLORIDE [Concomitant]
     Active Substance: MIDODRINE HYDROCHLORIDE
  20. DIGOXIN [Concomitant]
     Active Substance: DIGOXIN
  21. SOTALOL [Concomitant]
     Active Substance: SOTALOL
  22. MEDROL [Concomitant]
     Active Substance: METHYLPREDNISOLONE

REACTIONS (8)
  - Fall [None]
  - Loss of consciousness [None]
  - Hospitalisation [None]
  - Hypotension [Not Recovered/Not Resolved]
  - Nasopharyngitis [Not Recovered/Not Resolved]
  - Cough [Not Recovered/Not Resolved]
  - Dizziness [None]
  - Weight decreased [None]

NARRATIVE: CASE EVENT DATE: 20230801
